FAERS Safety Report 18393919 (Version 1)
Quarter: 2020Q4

REPORT INFORMATION
  Report Type: Spontaneous
  Country: US (occurrence: US)
  Receive Date: 20201016
  Receipt Date: 20201016
  Transmission Date: 20210114
  Serious: No
  Sender: FDA-Public Use
  Company Number: US-BAUSCH-BL-2020-029334

PATIENT
  Age: 67 Year
  Sex: Male
  Weight: 92.99 kg

DRUGS (4)
  1. INLYTA [Concomitant]
     Active Substance: AXITINIB
     Indication: METASTASES TO LUNG
  2. INLYTA [Concomitant]
     Active Substance: AXITINIB
     Indication: RENAL CANCER
     Route: 065
     Dates: start: 2020
  3. CICLOPIROX OLAMINE. [Suspect]
     Active Substance: CICLOPIROX OLAMINE
     Indication: RASH
     Route: 065
     Dates: start: 202009
  4. NYSTATIN. [Concomitant]
     Active Substance: NYSTATIN
     Indication: ORAL CANDIDIASIS

REACTIONS (1)
  - Therapeutic response decreased [Unknown]

NARRATIVE: CASE EVENT DATE: 2020
